FAERS Safety Report 10570291 (Version 1)
Quarter: 2014Q4

REPORT INFORMATION
  Report Type: Spontaneous
  Country: IR (occurrence: None)
  Receive Date: 20141105
  Receipt Date: 20141105
  Transmission Date: 20150529
  Serious: Yes (Hospitalization)
  Sender: FDA-Public Use
  Company Number: IMP_08008_2014

PATIENT
  Age: 25 Year
  Sex: Female

DRUGS (1)
  1. DIVALPROEX SODIUM. [Suspect]
     Active Substance: DIVALPROEX SODIUM
     Indication: PRODUCT USED FOR UNKNOWN INDICATION
     Dosage: 1 DAY UNTIL NOT CONTINUING
     Route: 058

REACTIONS (8)
  - Exposure via ingestion [None]
  - Hypotension [None]
  - Headache [None]
  - Suicide attempt [None]
  - Haemolysis [None]
  - Toxicity to various agents [None]
  - Somnolence [None]
  - Intentional overdose [None]
